FAERS Safety Report 8018753-2 (Version None)
Quarter: 2012Q1

REPORT INFORMATION
  Report Type: 
  Country: None (occurrence: None)
  Receive Date: 20120103
  Receipt Date: 20120103
  Transmission Date: 20120608
  Serious: Yes (Hospitalization, Other)
  Sender: FDA-Public Use
  Company Number: None

PATIENT
  Age: 66 Year
  Sex: Female
  Weight: 68.038 kg

DRUGS (1)
  1. LATANOPROST [Suspect]
     Indication: GLAUCOMA
     Dosage: ^ONE DROP-S- TO BOTH EYES^-SIC
     Route: 047
     Dates: start: 20111217, end: 20111227

REACTIONS (1)
  - GRAND MAL CONVULSION [None]
